FAERS Safety Report 10020684 (Version 5)
Quarter: 2014Q3

REPORT INFORMATION
  Report Type: Spontaneous
  Country: US (occurrence: US)
  Receive Date: 20140319
  Receipt Date: 20140827
  Transmission Date: 20150326
  Serious: Yes (Other)
  Sender: FDA-Public Use
  Company Number: US-009507513-1403USA007577

PATIENT
  Sex: Female
  Weight: 88.44 kg

DRUGS (57)
  1. SYLATRON [Suspect]
     Active Substance: PEGINTERFERON ALFA-2B
     Indication: MALIGNANT MELANOMA STAGE III
     Dosage: 160 MICROGRAM, QW
     Route: 058
     Dates: start: 20130307, end: 20130307
  2. SYLATRON [Suspect]
     Active Substance: PEGINTERFERON ALFA-2B
     Dosage: UNK
     Route: 058
     Dates: start: 20130417, end: 20130417
  3. SYLATRON [Suspect]
     Active Substance: PEGINTERFERON ALFA-2B
     Dosage: UNK
     Route: 058
     Dates: start: 20130605, end: 20130605
  4. SYLATRON [Suspect]
     Active Substance: PEGINTERFERON ALFA-2B
     Dosage: UNK
     Route: 058
     Dates: start: 20130710, end: 20130710
  5. CLARITIN [Suspect]
     Active Substance: LORATADINE
     Dosage: 10 MG, QD PRN
     Route: 048
  6. SYLATRON [Suspect]
     Active Substance: PEGINTERFERON ALFA-2B
     Dosage: UNK
     Route: 058
     Dates: start: 20130326, end: 20130326
  7. SYLATRON [Suspect]
     Active Substance: PEGINTERFERON ALFA-2B
     Dosage: UNK
     Route: 058
     Dates: start: 20130501, end: 20130501
  8. SYLATRON [Suspect]
     Active Substance: PEGINTERFERON ALFA-2B
     Dosage: UNK
     Route: 058
     Dates: start: 20130529, end: 20130529
  9. SYLATRON [Suspect]
     Active Substance: PEGINTERFERON ALFA-2B
     Dosage: UNK
     Route: 058
     Dates: start: 20130612, end: 20130612
  10. SYLATRON [Suspect]
     Active Substance: PEGINTERFERON ALFA-2B
     Dosage: UNK
     Route: 058
     Dates: start: 20130724, end: 20130724
  11. SYLATRON [Suspect]
     Active Substance: PEGINTERFERON ALFA-2B
     Dosage: UNK
     Route: 058
     Dates: start: 20131004, end: 20131004
  12. SYLATRON [Suspect]
     Active Substance: PEGINTERFERON ALFA-2B
     Dosage: UNK
     Route: 058
     Dates: start: 20131206, end: 20131206
  13. ALAVERT ALLERGY [Concomitant]
     Active Substance: LORATADINE
     Dosage: 10 MG, QD
     Route: 048
  14. SYLATRON [Suspect]
     Active Substance: PEGINTERFERON ALFA-2B
     Dosage: UNK
     Route: 058
     Dates: start: 20130807, end: 20130807
  15. SYLATRON [Suspect]
     Active Substance: PEGINTERFERON ALFA-2B
     Dosage: UNK
     Route: 058
     Dates: start: 20131115, end: 20131115
  16. SYLATRON [Suspect]
     Active Substance: PEGINTERFERON ALFA-2B
     Dosage: UNK
     Route: 058
     Dates: start: 20131122, end: 20131122
  17. SYLATRON [Suspect]
     Active Substance: PEGINTERFERON ALFA-2B
     Dosage: UNK
     Route: 058
     Dates: start: 20131212, end: 20131212
  18. SYLATRON [Suspect]
     Active Substance: PEGINTERFERON ALFA-2B
     Dosage: UNK
     Route: 058
     Dates: start: 20140108, end: 20140108
  19. STERILE DILUENT [Suspect]
     Active Substance: WATER
     Dosage: UNK
     Dates: start: 20130501, end: 20130501
  20. STERILE DILUENT [Suspect]
     Active Substance: WATER
     Dosage: UNK
     Dates: start: 20130523, end: 20130523
  21. CELEXA [Concomitant]
     Active Substance: CITALOPRAM HYDROBROMIDE
     Dosage: 20 MG, QD
     Route: 048
  22. SYLATRON [Suspect]
     Active Substance: PEGINTERFERON ALFA-2B
     Dosage: UNK
     Route: 058
     Dates: start: 20130320, end: 20130320
  23. SYLATRON [Suspect]
     Active Substance: PEGINTERFERON ALFA-2B
     Dosage: UNK
     Route: 058
     Dates: start: 20130919, end: 20130919
  24. SYLATRON [Suspect]
     Active Substance: PEGINTERFERON ALFA-2B
     Dosage: UNK
     Route: 058
     Dates: start: 20131017, end: 20131017
  25. SYLATRON [Suspect]
     Active Substance: PEGINTERFERON ALFA-2B
     Dosage: UNK
     Route: 058
     Dates: start: 20140212, end: 20140212
  26. SYLATRON [Suspect]
     Active Substance: PEGINTERFERON ALFA-2B
     Dosage: UNK
     Route: 058
     Dates: start: 20130516, end: 20130516
  27. SYLATRON [Suspect]
     Active Substance: PEGINTERFERON ALFA-2B
     Dosage: UNK
     Route: 058
     Dates: start: 20130702, end: 20130702
  28. SYLATRON [Suspect]
     Active Substance: PEGINTERFERON ALFA-2B
     Dosage: UNK
     Route: 058
     Dates: start: 20130827, end: 20130827
  29. SYLATRON [Suspect]
     Active Substance: PEGINTERFERON ALFA-2B
     Dosage: UNK
     Route: 058
     Dates: start: 20131030, end: 20131030
  30. SYLATRON [Suspect]
     Active Substance: PEGINTERFERON ALFA-2B
     Dosage: UNK
     Route: 058
     Dates: start: 20131227, end: 20131227
  31. SYLATRON [Suspect]
     Active Substance: PEGINTERFERON ALFA-2B
     Dosage: UNK
     Route: 058
     Dates: start: 20130523, end: 20130523
  32. SYLATRON [Suspect]
     Active Substance: PEGINTERFERON ALFA-2B
     Dosage: UNK
     Route: 058
     Dates: start: 20130619, end: 20130619
  33. SYLATRON [Suspect]
     Active Substance: PEGINTERFERON ALFA-2B
     Dosage: UNK
     Route: 058
     Dates: start: 20130814, end: 20130814
  34. SYLATRON [Suspect]
     Active Substance: PEGINTERFERON ALFA-2B
     Dosage: UNK
     Route: 058
     Dates: start: 20130821, end: 20130821
  35. SYLATRON [Suspect]
     Active Substance: PEGINTERFERON ALFA-2B
     Dosage: UNK
     Route: 058
     Dates: start: 20130904, end: 20130904
  36. SYLATRON [Suspect]
     Active Substance: PEGINTERFERON ALFA-2B
     Dosage: UNK
     Route: 058
     Dates: start: 20131108, end: 20131108
  37. SYLATRON [Suspect]
     Active Substance: PEGINTERFERON ALFA-2B
     Dosage: UNK
     Route: 058
     Dates: start: 20140122, end: 20140122
  38. SYLATRON [Suspect]
     Active Substance: PEGINTERFERON ALFA-2B
     Dosage: UNK
     Route: 058
     Dates: start: 20140205, end: 20140205
  39. SYLATRON [Suspect]
     Active Substance: PEGINTERFERON ALFA-2B
     Dosage: UNK
     Route: 058
     Dates: start: 20130410, end: 20130410
  40. SYLATRON [Suspect]
     Active Substance: PEGINTERFERON ALFA-2B
     Dosage: UNK
     Route: 058
     Dates: start: 20130731, end: 20130731
  41. SYLATRON [Suspect]
     Active Substance: PEGINTERFERON ALFA-2B
     Dosage: UNK
     Route: 058
     Dates: start: 20131011, end: 20131011
  42. SYLATRON [Suspect]
     Active Substance: PEGINTERFERON ALFA-2B
     Dosage: UNK
     Route: 058
     Dates: start: 20131220, end: 20131220
  43. SYLATRON [Suspect]
     Active Substance: PEGINTERFERON ALFA-2B
     Dosage: UNK
     Route: 058
     Dates: start: 20140102, end: 20140102
  44. SYLATRON [Suspect]
     Active Substance: PEGINTERFERON ALFA-2B
     Dosage: UNK
     Route: 058
     Dates: start: 20140129, end: 20140129
  45. SYLATRON [Suspect]
     Active Substance: PEGINTERFERON ALFA-2B
     Dosage: UNK
     Route: 058
     Dates: start: 20130314, end: 20130314
  46. SYLATRON [Suspect]
     Active Substance: PEGINTERFERON ALFA-2B
     Dosage: UNK
     Route: 058
     Dates: start: 20130403, end: 20130403
  47. SYLATRON [Suspect]
     Active Substance: PEGINTERFERON ALFA-2B
     Dosage: UNK
     Route: 058
     Dates: start: 20130424, end: 20130424
  48. SYLATRON [Suspect]
     Active Substance: PEGINTERFERON ALFA-2B
     Dosage: UNK
     Route: 058
     Dates: start: 20130509, end: 20130509
  49. SYLATRON [Suspect]
     Active Substance: PEGINTERFERON ALFA-2B
     Dosage: UNK
     Route: 058
     Dates: start: 20130625, end: 20130625
  50. SYLATRON [Suspect]
     Active Substance: PEGINTERFERON ALFA-2B
     Dosage: UNK
     Route: 058
     Dates: start: 20130717, end: 20130717
  51. SYLATRON [Suspect]
     Active Substance: PEGINTERFERON ALFA-2B
     Dosage: UNK
     Route: 058
     Dates: start: 20130911, end: 20130911
  52. SYLATRON [Suspect]
     Active Substance: PEGINTERFERON ALFA-2B
     Dosage: UNK
     Route: 058
     Dates: start: 20130926, end: 20130926
  53. SYLATRON [Suspect]
     Active Substance: PEGINTERFERON ALFA-2B
     Dosage: UNK
     Route: 058
     Dates: start: 20131024, end: 20131024
  54. SYLATRON [Suspect]
     Active Substance: PEGINTERFERON ALFA-2B
     Dosage: UNK
     Route: 058
     Dates: start: 20140221, end: 20140221
  55. SYLATRON [Suspect]
     Active Substance: PEGINTERFERON ALFA-2B
     Dosage: UNK
     Route: 058
     Dates: start: 20140226, end: 20140226
  56. STERILE DILUENT [Suspect]
     Active Substance: WATER
     Dosage: UNK
     Dates: start: 20130307, end: 20130307
  57. PROVENTIL [Suspect]
     Active Substance: ALBUTEROL
     Dosage: 90 MICROGRAM/ ACT, BID PRN
     Route: 055

REACTIONS (3)
  - Maternal exposure during pregnancy [Recovered/Resolved]
  - Caesarean section [Unknown]
  - High risk pregnancy [Unknown]

NARRATIVE: CASE EVENT DATE: 2014
